FAERS Safety Report 4654555-2 (Version None)
Quarter: 2005Q2

REPORT INFORMATION
  Report Type: 
  Country: None (occurrence: None)
  Receive Date: 20050504
  Receipt Date: 20050504
  Transmission Date: 20051028
  Serious: Yes (Other)
  Sender: FDA-Public Use
  Company Number: None

PATIENT
  Sex: Male
  Weight: 112.7 kg

DRUGS (1)
  1. FLUOROURACIL [Suspect]
     Indication: GASTRIC CANCER
     Dosage: 14816 MG
     Dates: start: 20050314, end: 20050414

REACTIONS (6)
  - ANOREXIA [None]
  - DEHYDRATION [None]
  - HYPOTENSION [None]
  - LABORATORY TEST ABNORMAL [None]
  - NAUSEA [None]
  - WEIGHT DECREASED [None]
